FAERS Safety Report 8942739 (Version 2)
Quarter: 2012Q4

REPORT INFORMATION
  Report Type: 
  Country: BE (occurrence: BE)
  Receive Date: 20121204
  Receipt Date: 20121220
  Transmission Date: 20130627
  Serious: Yes (Other)
  Sender: FDA-Public Use
  Company Number: BE-PFIZER INC-2012297234

PATIENT
  Age: 80 Year
  Sex: Male
  Weight: 64 kg

DRUGS (8)
  1. TOVIAZ [Suspect]
     Indication: URINARY INCONTINENCE
     Dosage: 8 mg, 1x/day
     Route: 048
     Dates: start: 20120221
  2. ENALAPRIL [Concomitant]
     Dosage: 20 mg, UNK
     Route: 048
  3. REMERGON [Concomitant]
     Dosage: 15 mg, UNK
     Route: 048
     Dates: start: 20120925
  4. BURINEX [Concomitant]
     Dosage: 5 mg, UNK
     Route: 048
  5. KREDEX [Concomitant]
     Dosage: 6.25 mg, UNK
     Route: 048
  6. PANTOMED [Concomitant]
     Dosage: 20 mg, UNK
     Route: 048
  7. NOVORAPID [Concomitant]
  8. LANTUS [Concomitant]
     Dosage: UNK

REACTIONS (2)
  - Amnesia [Not Recovered/Not Resolved]
  - Confusional state [Not Recovered/Not Resolved]
